FAERS Safety Report 5550458-X (Version None)
Quarter: 2007Q4

REPORT INFORMATION
  Report Type: 
  Country: None (occurrence: None)
  Receive Date: 20071212
  Receipt Date: 20070501
  Transmission Date: 20080405
  Serious: No
  Sender: FDA-Public Use
  Company Number: US-AMGEN-KDL222659

PATIENT
  Sex: Female

DRUGS (2)
  1. ENBREL [Suspect]
     Indication: PSORIASIS
     Route: 058
     Dates: start: 20061024
  2. RAPTIVA [Concomitant]
     Route: 058
     Dates: start: 20070412

REACTIONS (4)
  - ARTHRALGIA [None]
  - HEADACHE [None]
  - PRURITUS [None]
  - PYREXIA [None]
